FAERS Safety Report 7465034-1 (Version None)
Quarter: 2011Q2

REPORT INFORMATION
  Report Type: 
  Country: None (occurrence: None)
  Receive Date: 20110509
  Receipt Date: 20110331
  Transmission Date: 20111010
  Serious: Yes (Hospitalization, Other)
  Sender: FDA-Public Use
  Company Number: US-BAYER-201018992NA

PATIENT
  Age: 50 Year
  Sex: Female
  Weight: 78 kg

DRUGS (8)
  1. DROSPIRENONE AND ETHINYL ESTRADIOL [Suspect]
     Indication: PRODUCT USED FOR UNKNOWN INDICATION
  2. OXYCODONE [Concomitant]
     Dosage: 5/325 MG
     Dates: start: 20060407
  3. IBUPROFEN [Concomitant]
     Dosage: 800 MG, UNK
     Dates: start: 20081201
  4. CEPHALEXIN [Concomitant]
     Dosage: 500 MG, UNK
     Dates: start: 20081201
  5. ASTELIN [Concomitant]
     Dosage: 137 MCG
     Dates: start: 20051031
  6. MEDROXYPROGESTERONE [Concomitant]
     Dosage: 10 MG, UNK
     Dates: start: 20080627
  7. METRONIDAZOLE [Concomitant]
     Dosage: 500 MG, UNK
     Dates: start: 20080423
  8. YAZ [Suspect]
     Indication: PRODUCT USED FOR UNKNOWN INDICATION
     Dosage: UNK UNK, UNK
     Route: 048
     Dates: start: 20081110, end: 20090120

REACTIONS (1)
  - PULMONARY EMBOLISM [None]
